FAERS Safety Report 25170978 (Version 4)
Quarter: 2025Q3

REPORT INFORMATION
  Report Type: Report from Study
  Country: US (occurrence: US)
  Receive Date: 20250408
  Receipt Date: 20250926
  Transmission Date: 20251021
  Serious: Yes (Hospitalization, Other)
  Sender: SUNOVION
  Company Number: US-SUMITOMO PHARMA SWITZERLAND GMBH-2025SPA002952

PATIENT
  Age: 76 Year
  Sex: Male

DRUGS (19)
  1. ORGOVYX [Suspect]
     Active Substance: RELUGOLIX
     Indication: Prostate cancer
     Dosage: 360 MG, SINGLE
     Route: 048
     Dates: start: 20250304, end: 20250304
  2. ORGOVYX [Suspect]
     Active Substance: RELUGOLIX
     Dosage: 120 MG, QD
     Route: 048
     Dates: start: 20250305
  3. XTANDI [Suspect]
     Active Substance: ENZALUTAMIDE
     Indication: Product used for unknown indication
     Dosage: 160 MG, QD
  4. ATORVASTATIN [Concomitant]
     Active Substance: ATORVASTATIN
  5. ASPIRIN [Concomitant]
     Active Substance: ASPIRIN
  6. BROVANA [Concomitant]
     Active Substance: ARFORMOTEROL TARTRATE
  7. COENZYME Q10 [Concomitant]
     Active Substance: DIETARY SUPPLEMENT\UBIDECARENONE
  8. FISH OIL\OMEGA-3 FATTY ACIDS [Concomitant]
     Active Substance: FISH OIL\OMEGA-3 FATTY ACIDS
  9. VITAMIN C [Concomitant]
     Active Substance: ASCORBIC ACID
  10. FELODIPINE [Concomitant]
     Active Substance: FELODIPINE
  11. MAGNESIUM [Concomitant]
     Active Substance: MAGNESIUM
  12. MEGESTROL ACETATE [Concomitant]
     Active Substance: MEGESTROL ACETATE
  13. MONTELUKAST [Concomitant]
     Active Substance: MONTELUKAST
  14. PULMICORT TURBUHALER [Concomitant]
     Active Substance: BUDESONIDE
  15. Super calcium [Concomitant]
  16. TORSEMIDE [Concomitant]
     Active Substance: TORSEMIDE
  17. VITAMIN B12 [Concomitant]
     Active Substance: CYANOCOBALAMIN
  18. ELIGARD [Concomitant]
     Active Substance: LEUPROLIDE ACETATE
  19. REMERON [Concomitant]
     Active Substance: MIRTAZAPINE

REACTIONS (4)
  - Hip fracture [Unknown]
  - Fall [Unknown]
  - Fatigue [Unknown]
  - Hot flush [Unknown]
